FAERS Safety Report 10268820 (Version 1)
Quarter: 2014Q2

REPORT INFORMATION
  Report Type: Spontaneous
  Country: US (occurrence: US)
  Receive Date: 20140630
  Receipt Date: 20140630
  Transmission Date: 20141212
  Serious: Yes (Hospitalization)
  Sender: FDA-Public Use
  Company Number: PHHY2014US077949

PATIENT
  Age: 85 Year
  Sex: Male

DRUGS (5)
  1. DIGOXIN [Suspect]
     Indication: ACUTE MYOCARDIAL INFARCTION
  2. FUROSEMIDE [Suspect]
     Dosage: 40 MG, BID
     Route: 048
  3. FUROSEMIDE [Suspect]
     Dosage: 80 MG, BID
     Route: 048
  4. METOLAZONE [Suspect]
     Indication: CARDIAC FAILURE
     Dosage: 2.5 MG, DAILY
     Route: 048
  5. ENALAPRIL [Concomitant]

REACTIONS (10)
  - Toxicity to various agents [Unknown]
  - Decreased appetite [Unknown]
  - Ventricular tachycardia [Recovered/Resolved]
  - Heart sounds abnormal [Unknown]
  - Cardiac murmur [Unknown]
  - Blood creatinine increased [Recovered/Resolved]
  - Cardioactive drug level increased [Unknown]
  - Cardiomegaly [Unknown]
  - Pleural effusion [Unknown]
  - Renal failure acute [Unknown]
